FAERS Safety Report 9921818 (Version 1)
Quarter: 2014Q1

REPORT INFORMATION
  Report Type: Spontaneous
  Country: US (occurrence: US)
  Receive Date: 20140225
  Receipt Date: 20140225
  Transmission Date: 20141002
  Serious: No
  Sender: FDA-Public Use
  Company Number: US-BAYER-2014-029099

PATIENT
  Age: 26 Year
  Sex: Male
  Weight: 90.7 kg

DRUGS (2)
  1. ALEVE CAPLET [Suspect]
     Indication: BACK PAIN
     Dosage: 2 DF, PRN
     Route: 048
  2. ALEVE CAPLET [Suspect]
     Indication: BACK PAIN
     Dosage: 2 DF, BID
     Route: 048

REACTIONS (1)
  - Extra dose administered [None]
